FAERS Safety Report 7595143-8 (Version None)
Quarter: 2011Q3

REPORT INFORMATION
  Report Type: 
  Country: None (occurrence: None)
  Receive Date: 20110707
  Receipt Date: 20110621
  Transmission Date: 20111222
  Serious: No
  Sender: FDA-Public Use
  Company Number: US-B.I. PHARMACEUTICALS,INC./RIDGEFIELD-2011-BP-16085BP

PATIENT
  Sex: Female

DRUGS (6)
  1. NEURONTIN [Concomitant]
     Indication: NEUROPATHY PERIPHERAL
  2. PRADAXA [Suspect]
     Indication: ATRIAL FIBRILLATION
     Dosage: 300 MG
     Route: 048
     Dates: start: 20110601, end: 20110601
  3. CRESTOR [Concomitant]
     Indication: BLOOD CHOLESTEROL INCREASED
  4. GLIPIZIDE [Concomitant]
  5. UNSPECIFIED DIABETES MEDICATION [Concomitant]
     Indication: TYPE 2 DIABETES MELLITUS
  6. SOTALOL HCL [Concomitant]
     Indication: ATRIAL FIBRILLATION

REACTIONS (6)
  - HAEMATOCHEZIA [None]
  - DYSPEPSIA [None]
  - LETHARGY [None]
  - HYPERSOMNIA [None]
  - CONTUSION [None]
  - ANAEMIA [None]
